FAERS Safety Report 5542712-2 (Version None)
Quarter: 2007Q4

REPORT INFORMATION
  Report Type: 
  Country: None (occurrence: None)
  Receive Date: 20071210
  Receipt Date: 20071130
  Transmission Date: 20080405
  Serious: Yes (Other)
  Sender: FDA-Public Use
  Company Number: US-PFIZER INC-2007037976

PATIENT
  Sex: Male
  Weight: 93 kg

DRUGS (5)
  1. VIAGRA [Suspect]
     Indication: ERECTILE DYSFUNCTION
     Dates: start: 19980101, end: 20020201
  2. BENAZEPRIL HYDROCHLORIDE [Concomitant]
     Indication: HYPERTENSION
     Dates: start: 19981001, end: 20070501
  3. TERAZOSIN HCL [Concomitant]
     Indication: PROSTATIC DISORDER
     Dates: start: 19900115, end: 20070516
  4. NEXIUM [Concomitant]
     Dates: start: 20000101
  5. IBUPROFEN [Concomitant]
     Dosage: DAILY DOSE:800MG
     Dates: start: 20030101

REACTIONS (4)
  - BLINDNESS [None]
  - BLINDNESS TRANSIENT [None]
  - OPTIC ISCHAEMIC NEUROPATHY [None]
  - VISION BLURRED [None]
